FAERS Safety Report 7076115-9 (Version None)
Quarter: 2010Q4

REPORT INFORMATION
  Report Type: 
  Country: None (occurrence: None)
  Receive Date: 20101021
  Receipt Date: 20101008
  Transmission Date: 20110411
  Serious: Yes (Disabling, Other)
  Sender: FDA-Public Use
  Company Number: 2010MA003494

PATIENT
  Age: 59 Year
  Sex: Female
  Weight: 103.4201 kg

DRUGS (13)
  1. METOCLOPRAMIDE [Suspect]
     Indication: IMPAIRED GASTRIC EMPTYING
     Dosage: 10 MG;QID;PO
     Route: 048
     Dates: start: 20070309, end: 20090301
  2. NEURONTIN [Concomitant]
  3. MOBIC [Concomitant]
  4. PREVACID [Concomitant]
  5. ATENOLOL [Concomitant]
  6. CLARINEX [Concomitant]
  7. HYDROCHLOROTHIAZIDE [Concomitant]
  8. IMITREX [Concomitant]
  9. PROVIGIL [Concomitant]
  10. VICODIN [Concomitant]
  11. ZOCOR [Concomitant]
  12. AMBIEN [Concomitant]
  13. PREV MEDS [Concomitant]

REACTIONS (11)
  - BRUXISM [None]
  - CHILLS [None]
  - DYSKINESIA [None]
  - HOT FLUSH [None]
  - HYPERHIDROSIS [None]
  - IMPAIRED GASTRIC EMPTYING [None]
  - MUSCLE TWITCHING [None]
  - MUSCULAR WEAKNESS [None]
  - TARDIVE DYSKINESIA [None]
  - TOOTHACHE [None]
  - TREMOR [None]
